FAERS Safety Report 19439612 (Version 2)
Quarter: 2021Q3

REPORT INFORMATION
  Report Type: Report from Study
  Country: None (occurrence: US)
  Receive Date: 20210619
  Receipt Date: 20210707
  Transmission Date: 20211014
  Serious: Yes (Hospitalization)
  Sender: FDA-Public Use
  Company Number: US-ABBVIE-21K-163-3955304-00

PATIENT
  Age: 48 Year
  Sex: Female
  Weight: 136.2 kg

DRUGS (4)
  1. CREON [Suspect]
     Active Substance: PANCRELIPASE AMYLASE\PANCRELIPASE LIPASE\PANCRELIPASE PROTEASE
     Indication: DIARRHOEA
     Dosage: TWO IN THE MORNING, TWO IN THE MEAL, ONE IN AFTERNOON, AND TWO IN BEDTIME
     Route: 048
     Dates: start: 2020
  2. CREON [Suspect]
     Active Substance: PANCRELIPASE AMYLASE\PANCRELIPASE LIPASE\PANCRELIPASE PROTEASE
     Indication: BILIARY TRACT DISORDER
  3. MODERNA COVID?19 VACCINE [Concomitant]
     Active Substance: CX-024414
     Route: 030
     Dates: start: 20210212, end: 20210212
  4. MODERNA COVID?19 VACCINE [Concomitant]
     Active Substance: CX-024414
     Indication: COVID-19 IMMUNISATION
     Route: 030
     Dates: start: 20210115, end: 20210115

REACTIONS (5)
  - Immunodeficiency [Unknown]
  - Gastroenteritis viral [Unknown]
  - Rotavirus test positive [Recovered/Resolved]
  - Urinary tract infection [Recovered/Resolved]
  - Lethargy [Recovered/Resolved]

NARRATIVE: CASE EVENT DATE: 202106
